FAERS Safety Report 9752378 (Version 1)
Quarter: 2013Q4

REPORT INFORMATION
  Report Type: Spontaneous
  Country: US (occurrence: US)
  Receive Date: 20131213
  Receipt Date: 20131213
  Transmission Date: 20140711
  Serious: No
  Sender: FDA-Public Use
  Company Number: US-PFIZER INC-2013356898

PATIENT
  Age: 31 Year
  Sex: Female
  Weight: 63.04 kg

DRUGS (5)
  1. GABAPENTIN [Suspect]
     Indication: VESTIBULAR DISORDER
     Dosage: 100 MG, UNK
     Dates: start: 201312
  2. RANITIDINE [Concomitant]
     Dosage: 150 MG, UNK
  3. PROSTIGMIN [Concomitant]
     Indication: NERVOUS SYSTEM DISORDER
     Dosage: UNK (QUARTERS OF 50 MG THROUGHOUT THE DAY)
  4. PROBIOTICA [Concomitant]
     Indication: GASTROINTESTINAL DISORDER
     Dosage: UNK
  5. PROBIOTICA [Concomitant]
     Indication: IMMUNE SYSTEM DISORDER

REACTIONS (9)
  - Somnolence [Unknown]
  - Dizziness [Recovering/Resolving]
  - Gait disturbance [Unknown]
  - Abdominal discomfort [Unknown]
  - Confusional state [Unknown]
  - Disorientation [Unknown]
  - Diarrhoea [Unknown]
  - Nausea [Recovering/Resolving]
  - Tremor [Recovering/Resolving]
